FAERS Safety Report 20574004 (Version 1)
Quarter: 2022Q1

REPORT INFORMATION
  Report Type: Spontaneous
  Country: US (occurrence: None)
  Receive Date: 20220309
  Receipt Date: 20220309
  Transmission Date: 20220423
  Serious: Yes (unspecified)
  Sender: FDA-Public Use
  Company Number: None

PATIENT
  Sex: Female
  Weight: 60 kg

DRUGS (6)
  1. TEPEZZA [Suspect]
     Active Substance: TEPROTUMUMAB-TRBW
  2. TEPEZZA [Concomitant]
     Active Substance: TEPROTUMUMAB-TRBW
     Dates: start: 20211124, end: 20211124
  3. TEPEZZA [Concomitant]
     Active Substance: TEPROTUMUMAB-TRBW
     Dates: start: 20211215, end: 20211215
  4. TEPEZZA [Concomitant]
     Active Substance: TEPROTUMUMAB-TRBW
     Dates: end: 20220105
  5. TEPEZZA [Concomitant]
     Active Substance: TEPROTUMUMAB-TRBW
     Dates: start: 20220126, end: 20220126
  6. TEPEZZA [Concomitant]
     Active Substance: TEPROTUMUMAB-TRBW
     Dates: start: 20220216, end: 20220216

REACTIONS (1)
  - Ear disorder [None]

NARRATIVE: CASE EVENT DATE: 20220309
